FAERS Safety Report 9086748 (Version 1)
Quarter: 2013Q1

REPORT INFORMATION
  Report Type: Report from Study
  Country: US (occurrence: US)
  Receive Date: 20130131
  Receipt Date: 20130131
  Transmission Date: 20140127
  Serious: No
  Sender: FDA-Public Use
  Company Number: US-ABBOTT-12P-163-0940554-00

PATIENT
  Age: 60 Year
  Sex: Male

DRUGS (12)
  1. HUMIRA 40 MG/0.8 ML PEN [Suspect]
     Indication: CROHN^S DISEASE
     Dosage: LOADING DOSE
     Route: 058
     Dates: start: 20120602
  2. ASACOL [Concomitant]
     Indication: CROHN^S DISEASE
     Dosage: 6 TABLETS IN AM AND 6 IN PM
  3. MULTIVITAMIN [Concomitant]
     Indication: PRODUCT USED FOR UNKNOWN INDICATION
     Dosage: DAILY
     Route: 048
  4. FOSAMAX [Concomitant]
     Indication: OSTEOPOROSIS PROPHYLAXIS
     Route: 048
  5. FOSAMAX [Concomitant]
     Indication: CROHN^S DISEASE
  6. VITAMIN D3 [Concomitant]
     Indication: CROHN^S DISEASE
  7. VITAMIN B [Concomitant]
     Indication: PRODUCT USED FOR UNKNOWN INDICATION
     Dosage: DAILY
  8. FOLIC ACID [Concomitant]
     Indication: PRODUCT USED FOR UNKNOWN INDICATION
  9. ENTOCORT [Concomitant]
     Indication: CROHN^S DISEASE
  10. CECLOR [Concomitant]
     Indication: FISTULA
  11. PREVALITE [Concomitant]
     Indication: PRODUCT USED FOR UNKNOWN INDICATION
     Dosage: 5.5 GM BID
  12. VITAMIN B12 [Concomitant]
     Indication: CROHN^S DISEASE
     Route: 048

REACTIONS (3)
  - Diarrhoea [Recovered/Resolved]
  - Rash papular [Not Recovered/Not Resolved]
  - Herpes zoster [Not Recovered/Not Resolved]
